FAERS Safety Report 5613344-2 (Version None)
Quarter: 2008Q1

REPORT INFORMATION
  Report Type: 
  Country: None (occurrence: None)
  Receive Date: 20080129
  Receipt Date: 20080111
  Transmission Date: 20080703
  Serious: Yes (Hospitalization)
  Sender: FDA-Public Use
  Company Number: DSA_31341_2008

PATIENT
  Sex: Male

DRUGS (6)
  1. TEMESTA /00273201/ (TEMESTA - LORAZEPAM) 2 MG (NOT SPECIFIED) [Suspect]
     Indication: DRUG USE FOR UNKNOWN INDICATION
     Dosage: (2 MG QD ORAL)
     Route: 048
     Dates: start: 20070501, end: 20070503
  2. SINEMET [Concomitant]
  3. SIRDALUD [Concomitant]
  4. PANTOZOL [Concomitant]
  5. ALDACTONE [Concomitant]
  6. REMERON [Concomitant]

REACTIONS (6)
  - AGITATION [None]
  - DEPRESSION [None]
  - INSOMNIA [None]
  - LOGORRHOEA [None]
  - MANIA [None]
  - RESTLESSNESS [None]
